FAERS Safety Report 7416767-4 (Version None)
Quarter: 2011Q2

REPORT INFORMATION
  Report Type: 
  Country: None (occurrence: None)
  Receive Date: 20110415
  Receipt Date: 20110407
  Transmission Date: 20111010
  Serious: Yes (Other)
  Sender: FDA-Public Use
  Company Number: US-BIOGENIDEC-2011BI013126

PATIENT
  Age: 53 Year
  Sex: Female

DRUGS (1)
  1. AVONEX [Suspect]
     Indication: MULTIPLE SCLEROSIS
     Route: 030
     Dates: start: 20110128

REACTIONS (7)
  - FATIGUE [None]
  - DIZZINESS [None]
  - MUSCLE SPASMS [None]
  - CONVULSION [None]
  - HYPOAESTHESIA [None]
  - HEADACHE [None]
  - DEPRESSION [None]
